FAERS Safety Report 5826843-5 (Version None)
Quarter: 2008Q3

REPORT INFORMATION
  Report Type: 
  Country: None (occurrence: None)
  Receive Date: 20080729
  Receipt Date: 20080729
  Transmission Date: 20090109
  Serious: Yes (Hospitalization)
  Sender: FDA-Public Use
  Company Number: None

PATIENT
  Sex: Male
  Weight: 63 kg

DRUGS (11)
  1. BEVACIZUMAB (GENENTECH) [Suspect]
     Indication: GLIOBLASTOMA MULTIFORME
     Dosage: 10 MG/KG IV Q 2 WEEKS CYCLE 8
     Route: 042
     Dates: start: 20080410
  2. BEVACIZUMAB (GENENTECH) [Suspect]
     Indication: GLIOBLASTOMA MULTIFORME
     Dosage: 10 MG/KG IV Q 2 WEEKS CYCLE 8
     Route: 042
     Dates: start: 20080424
  3. BEVACIZUMAB (GENENTECH) [Suspect]
     Indication: GLIOBLASTOMA MULTIFORME
     Dosage: 10 MG/KG IV Q 2 WEEKS CYCLE 8
     Route: 042
     Dates: start: 20080508
  4. ERLOTINIB (GENENTECH) [Suspect]
     Indication: GLIOBLASTOMA MULTIFORME
     Dosage: 200 MG PO DAILY CYCLE 8
     Route: 048
     Dates: start: 20080410, end: 20080516
  5. CITALOPRAM HYDROBROMIDE [Concomitant]
  6. IMODIUM [Concomitant]
  7. LISINOPRIL [Concomitant]
  8. LONOX [Concomitant]
  9. KEPPRA [Concomitant]
  10. LORAZEPAM [Concomitant]
  11. LIPITOR [Concomitant]

REACTIONS (6)
  - ASTHENIA [None]
  - CSF TEST ABNORMAL [None]
  - INTRACRANIAL HYPOTENSION [None]
  - MENINGITIS [None]
  - PSEUDOMONAS INFECTION [None]
  - WOUND COMPLICATION [None]
